FAERS Safety Report 11831791 (Version 1)
Quarter: 2015Q4

REPORT INFORMATION
  Report Type: Spontaneous
  Country: US (occurrence: None)
  Receive Date: 20151211
  Receipt Date: 20151211
  Transmission Date: 20160305
  Serious: No
  Sender: FDA-Public Use
  Company Number: None

PATIENT
  Age: 55 Year
  Sex: Female

DRUGS (5)
  1. AZATHIOPRINE. [Suspect]
     Active Substance: AZATHIOPRINE
     Indication: POLYMYOSITIS
     Dates: start: 20130107, end: 20140905
  2. PRAVASTATIN [Suspect]
     Active Substance: PRAVASTATIN\PRAVASTATIN SODIUM
     Indication: HYPERLIPIDAEMIA
     Dates: start: 20140724, end: 20140902
  3. NITROFURANTOIN. [Concomitant]
     Active Substance: NITROFURANTOIN
  4. PRADAXA [Concomitant]
     Active Substance: DABIGATRAN ETEXILATE MESYLATE
  5. METHOTREXATE [Concomitant]
     Active Substance: METHOTREXATE

REACTIONS (5)
  - Tracheal disorder [None]
  - Cholestasis [None]
  - Drug-induced liver injury [None]
  - Pneumonia [None]
  - Inflammation [None]

NARRATIVE: CASE EVENT DATE: 20140904
